FAERS Safety Report 6710271-4 (Version None)
Quarter: 2010Q2

REPORT INFORMATION
  Report Type: 
  Country: None (occurrence: None)
  Receive Date: 20100430
  Receipt Date: 20100416
  Transmission Date: 20101027
  Serious: Yes (Other)
  Sender: FDA-Public Use
  Company Number: 010592

PATIENT
  Age: 21 Year
  Sex: Male

DRUGS (2)
  1. VIMPAT [Suspect]
     Indication: PARTIAL SEIZURES
     Dosage: MAXIUM DOSE: 300 MG; INCREASE: 100 MG/WEEK
     Dates: start: 20081216, end: 20090226
  2. CLOBAZAM [Concomitant]

REACTIONS (1)
  - GASTROINTESTINAL DISORDER [None]
